FAERS Safety Report 21891474 (Version 1)
Quarter: 2023Q1

REPORT INFORMATION
  Report Type: Spontaneous
  Country: US (occurrence: None)
  Receive Date: 20230120
  Receipt Date: 20230120
  Transmission Date: 20230418
  Serious: Yes (Hospitalization)
  Sender: FDA-Public Use
  Company Number: None

PATIENT
  Sex: Male
  Weight: 80 kg

DRUGS (4)
  1. CISPLATIN [Suspect]
     Active Substance: CISPLATIN
     Dates: end: 20200614
  2. FILGRASTIM [Suspect]
     Active Substance: FILGRASTIM
     Dates: end: 20200624
  3. IFOSFAMIDE [Suspect]
     Active Substance: IFOSFAMIDE
     Dates: end: 20200614
  4. TAXOL [Suspect]
     Active Substance: PACLITAXEL
     Dates: end: 20200610

REACTIONS (5)
  - Febrile neutropenia [None]
  - Herpes zoster [None]
  - Haemoglobin decreased [None]
  - Platelet count decreased [None]
  - Malignant neoplasm progression [None]

NARRATIVE: CASE EVENT DATE: 20200622
